FAERS Safety Report 9403721 (Version 2)
Quarter: 2013Q3

REPORT INFORMATION
  Report Type: Spontaneous
  Country: IT (occurrence: IT)
  Receive Date: 20130717
  Receipt Date: 20130826
  Transmission Date: 20140515
  Serious: Yes (Disabling, Other)
  Sender: FDA-Public Use
  Company Number: IT-AMGEN-ITASP2013049592

PATIENT
  Age: 85 Year
  Sex: Male

DRUGS (5)
  1. ENBREL [Suspect]
     Indication: PSORIASIS
     Dosage: 50 MG, CYCLIC
     Route: 058
     Dates: start: 20130416, end: 20130510
  2. ENBREL [Suspect]
     Indication: ERYTHRODERMIC PSORIASIS
  3. LANSOPRAZOLE [Concomitant]
     Dosage: UNK
  4. CORDARONE [Concomitant]
     Dosage: UNK
  5. LASIX                              /00032601/ [Concomitant]
     Dosage: UNK

REACTIONS (3)
  - Ischaemic stroke [Recovered/Resolved with Sequelae]
  - Aphasia [Recovered/Resolved with Sequelae]
  - Hemiparesis [Recovered/Resolved with Sequelae]
